FAERS Safety Report 19254936 (Version 1)
Quarter: 2021Q2

REPORT INFORMATION
  Report Type: Report from Study
  Country: JP (occurrence: JP)
  Receive Date: 20210513
  Receipt Date: 20210513
  Transmission Date: 20210717
  Serious: Yes (Other)
  Sender: FDA-Public Use
  Company Number: JP-AUROBINDO-AUR-APL-2021-018720

PATIENT
  Age: 6 Year
  Sex: Female

DRUGS (15)
  1. MELPHALAN. [Suspect]
     Active Substance: MELPHALAN
     Indication: ACUTE LYMPHOCYTIC LEUKAEMIA
     Dosage: 180 MG/M2
     Route: 065
  2. BUSULFAN. [Suspect]
     Active Substance: BUSULFAN
     Dosage: 4.6 MILLIGRAM/KILOGRAM
     Route: 065
  3. BUSULFAN. [Suspect]
     Active Substance: BUSULFAN
     Dosage: 2.86 MILLIGRAM/KILOGRAM,
     Route: 042
  4. CLOFARABINE. [Suspect]
     Active Substance: CLOFARABINE
     Indication: HAEMATOLOGICAL MALIGNANCY
     Dosage: 40 MG/M2, ONCE A DAY
     Route: 042
  5. ETOPOSIDE. [Suspect]
     Active Substance: ETOPOSIDE
     Indication: ACUTE LYMPHOCYTIC LEUKAEMIA
     Dosage: 60 MILLIGRAM/KILOGRAM
     Route: 065
  6. BUSULFAN. [Suspect]
     Active Substance: BUSULFAN
     Indication: HAEMATOLOGICAL MALIGNANCY
     Dosage: 0.5MG/KG, 0.5 MG/KG,
     Route: 065
  7. PREDNISOLONE. [Suspect]
     Active Substance: PREDNISOLONE
     Indication: PROPHYLAXIS AGAINST GRAFT VERSUS HOST DISEASE
     Dosage: 1 MILLIGRAM/KILOGRAM, ONCE A DAY
     Route: 065
  8. ANTILYMPHOCYTE IMMUNOGLOBULIN [Suspect]
     Active Substance: THYMOCYTE IMMUNE GLOBULIN NOS
     Indication: PROPHYLAXIS AGAINST GRAFT VERSUS HOST DISEASE
     Dosage: (1.25?2.5 MG/KG) ON DAYS ?2 AND ?1
     Route: 042
  9. CYCLOPHOSPHAMIDE. [Suspect]
     Active Substance: CYCLOPHOSPHAMIDE
     Indication: ACUTE LYMPHOCYTIC LEUKAEMIA
     Dosage: 180 MILLIGRAM/KILOGRAM
     Route: 065
  10. METHOTREXATE. [Suspect]
     Active Substance: METHOTREXATE
     Indication: PROPHYLAXIS AGAINST GRAFT VERSUS HOST DISEASE
     Dosage: 15 MG/M2
     Route: 065
  11. TACROLIMUS. [Suspect]
     Active Substance: TACROLIMUS
     Indication: PROPHYLAXIS AGAINST GRAFT VERSUS HOST DISEASE
     Dosage: CONTINUOUS I.V. FROM DAY ?1; TARGETED BLOOD CONCENTRATION = 8?10 NG/ML
     Route: 042
  12. CLOFARABINE. [Suspect]
     Active Substance: CLOFARABINE
     Dosage: UNK
     Route: 065
  13. DEXAMETHASONE. [Suspect]
     Active Substance: DEXAMETHASONE
     Indication: PROPHYLAXIS
     Dosage: 10 MG/M2, ONCE A DAY
     Route: 065
  14. METHOTREXATE. [Suspect]
     Active Substance: METHOTREXATE
     Dosage: 10 UNK
     Route: 065
  15. URSODEOXYCHOLIC ACID [Suspect]
     Active Substance: URSODIOL
     Indication: PROPHYLAXIS
     Dosage: UNK
     Route: 065

REACTIONS (8)
  - Hypertension [Unknown]
  - Adenovirus infection [Recovering/Resolving]
  - Alanine aminotransferase increased [Unknown]
  - Viral infection [Unknown]
  - Febrile neutropenia [Unknown]
  - Drug resistance [Unknown]
  - Stomatitis [Unknown]
  - Enterocolitis viral [Recovering/Resolving]
